FAERS Safety Report 9518139 (Version 3)
Quarter: 2013Q4

REPORT INFORMATION
  Report Type: Spontaneous
  Country: US (occurrence: US)
  Receive Date: 20130912
  Receipt Date: 20131007
  Transmission Date: 20140711
  Serious: Yes (Hospitalization, Other)
  Sender: FDA-Public Use
  Company Number: US-JNJFOC-20130317681

PATIENT
  Age: 25 Year
  Sex: Female

DRUGS (5)
  1. TOPAMAX [Suspect]
     Indication: CONVULSION
     Route: 048
     Dates: start: 200509, end: 200605
  2. TOPAMAX [Suspect]
     Indication: CONVULSION
     Route: 048
     Dates: start: 200509, end: 200605
  3. VITAMINS NOS [Concomitant]
     Route: 065
  4. PRENATAL VITAMINS [Concomitant]
     Indication: PREGNANCY
     Route: 065
  5. FOLATE [Concomitant]
     Indication: PREGNANCY
     Route: 065

REACTIONS (5)
  - Ovarian cyst [Unknown]
  - Exposure during pregnancy [Recovered/Resolved]
  - Placenta praevia [Unknown]
  - Hypertension [Unknown]
  - Emotional distress [Unknown]
